FAERS Safety Report 14742085 (Version 1)
Quarter: 2018Q2

REPORT INFORMATION
  Report Type: Spontaneous
  Country: FR (occurrence: FR)
  Receive Date: 20180410
  Receipt Date: 20180410
  Transmission Date: 20180711
  Serious: Yes (Other)
  Sender: FDA-Public Use
  Company Number: FR-ROCHE-2101819

PATIENT
  Age: 58 Year
  Sex: Female
  Weight: 47 kg

DRUGS (6)
  1. ZOPHREN [Suspect]
     Active Substance: ONDANSETRON
     Indication: NAUSEA
     Dosage: MOSET RECENT DOSE ON 2018
     Route: 048
     Dates: start: 2018
  2. PRIMPERAN [Suspect]
     Active Substance: METOCLOPRAMIDE HYDROCHLORIDE
     Indication: NAUSEA
     Dosage: MOSET RECENT DOSE ON 2018
     Route: 048
     Dates: start: 2018
  3. XELODA [Suspect]
     Active Substance: CAPECITABINE
     Indication: NEUROENDOCRINE TUMOUR
     Dosage: MOST RECENT DOSE ON 11/FEB/2018
     Route: 048
     Dates: start: 20180129
  4. PARACETAMOL [Suspect]
     Active Substance: ACETAMINOPHEN
     Indication: GAIT DISTURBANCE
     Route: 048
  5. TEMODAL [Suspect]
     Active Substance: TEMOZOLOMIDE
     Indication: NEUROENDOCRINE TUMOUR
     Dosage: MOSET RECENT DOSE ON 11/FEB/2018
     Route: 048
     Dates: start: 20180207
  6. ACUPAN [Concomitant]
     Active Substance: NEFOPAM HYDROCHLORIDE
     Indication: GAIT DISTURBANCE
     Route: 065

REACTIONS (1)
  - Liver injury [Recovering/Resolving]

NARRATIVE: CASE EVENT DATE: 20180222
